FAERS Safety Report 23996698 (Version 1)
Quarter: 2024Q2

REPORT INFORMATION
  Report Type: Spontaneous
  Country: US (occurrence: US)
  Receive Date: 20240620
  Receipt Date: 20240620
  Transmission Date: 20240715
  Serious: No
  Sender: FDA-Public Use
  Company Number: US-GE HEALTHCARE-2024CSU005574

PATIENT
  Age: 42 Year
  Sex: Male
  Weight: 100.42 kg

DRUGS (3)
  1. OMNIPAQUE [Suspect]
     Active Substance: IOHEXOL
     Indication: Computerised tomogram
     Dosage: 50 ML, TOTAL
     Route: 042
     Dates: start: 20240517, end: 20240517
  2. QULIPTA [Concomitant]
     Active Substance: ATOGEPANT
     Dosage: 30 MG, QD
     Route: 065
  3. ESZOPICLONE [Concomitant]
     Active Substance: ESZOPICLONE
     Dosage: 3 MG, PRN
     Route: 065

REACTIONS (1)
  - Throat irritation [Recovered/Resolved]

NARRATIVE: CASE EVENT DATE: 20240517
